FAERS Safety Report 9496490 (Version 1)
Quarter: 2013Q3

REPORT INFORMATION
  Report Type: Report from Study
  Country: US (occurrence: US)
  Receive Date: 20130904
  Receipt Date: 20130904
  Transmission Date: 20140515
  Serious: Yes (Other)
  Sender: FDA-Public Use
  Company Number: PHEH2013US018550

PATIENT
  Age: 74 Year
  Sex: Male

DRUGS (1)
  1. ILARIS [Suspect]
     Dosage: 150 MG, UNK

REACTIONS (2)
  - Angina pectoris [Unknown]
  - Hearing impaired [Unknown]
